FAERS Safety Report 19945614 (Version 2)
Quarter: 2022Q1

REPORT INFORMATION
  Report Type: Spontaneous
  Country: JP (occurrence: JP)
  Receive Date: 20211012
  Receipt Date: 20220207
  Transmission Date: 20220423
  Serious: Yes (Death, Life-Threatening, Hospitalization, Other)
  Sender: FDA-Public Use
  Company Number: JP-JNJFOC-A-CH2015-122891

PATIENT
  Age: 9 Year
  Sex: Female

DRUGS (13)
  1. OPSUMIT [Suspect]
     Active Substance: MACITENTAN
     Indication: Pulmonary arterial hypertension
     Dosage: 4 MG, QD
     Route: 048
     Dates: start: 20150728
  2. OPSUMIT [Suspect]
     Active Substance: MACITENTAN
     Indication: Pulmonary arterial hypertension
     Dosage: 4 MG, QD
     Route: 048
     Dates: start: 20150727, end: 20150804
  3. TRACLEER [Suspect]
     Active Substance: BOSENTAN
     Indication: Pulmonary arterial hypertension
     Dosage: UNK
     Route: 048
     Dates: end: 20150727
  4. TRACLEER [Suspect]
     Active Substance: BOSENTAN
     Indication: Pulmonary arterial hypertension
     Dosage: UNK
     Route: 048
     Dates: start: 20150727, end: 20150727
  5. FLOLAN [Concomitant]
     Active Substance: EPOPROSTENOL SODIUM
     Indication: Pulmonary arterial hypertension
     Route: 042
  6. FLOLAN [Concomitant]
     Active Substance: EPOPROSTENOL SODIUM
     Indication: Pulmonary arterial hypertension
  7. BERAPROST SODIUM [Concomitant]
     Active Substance: BERAPROST SODIUM
     Indication: Pulmonary arterial hypertension
     Route: 048
     Dates: start: 20140318, end: 20150804
  8. REVATIO [Concomitant]
     Active Substance: SILDENAFIL CITRATE
     Route: 048
     Dates: start: 20120308, end: 20150804
  9. ADCIRCA [Concomitant]
     Active Substance: TADALAFIL
     Indication: Pulmonary arterial hypertension
  10. LASIX [Concomitant]
     Active Substance: FUROSEMIDE
     Indication: Polyuria
  11. OXYGEN [Concomitant]
     Active Substance: OXYGEN
     Route: 055
  12. NITRIC OXIDE [Concomitant]
     Active Substance: NITRIC OXIDE
     Route: 055
  13. MILRINONE [Concomitant]
     Active Substance: MILRINONE

REACTIONS (8)
  - Blood urea increased [Fatal]
  - Pulmonary arterial hypertension [Fatal]
  - Acute kidney injury [Fatal]
  - Cardiac failure acute [Fatal]
  - Hepatic function abnormal [Not Recovered/Not Resolved]
  - Pseudomembranous colitis [Unknown]
  - Hyperbilirubinaemia [Not Recovered/Not Resolved]
  - Disease progression [Unknown]

NARRATIVE: CASE EVENT DATE: 20150701
